FAERS Safety Report 24309483 (Version 6)
Quarter: 2025Q4

REPORT INFORMATION
  Report Type: Report from Study
  Country: US (occurrence: US)
  Receive Date: 20240911
  Receipt Date: 20251201
  Transmission Date: 20260118
  Serious: No
  Sender: MERCK SHARP & DOHME LLC
  Company Number: US-009507513-2409USA003556

PATIENT
  Sex: Female
  Weight: 82.5 kg

DRUGS (18)
  1. WINREVAIR [Suspect]
     Active Substance: SOTATERCEPT-CSRK
     Indication: Pulmonary arterial hypertension
     Dosage: DOSE DESCRIPTION : UNK
     Dates: start: 2024, end: 2024
  2. WINREVAIR [Suspect]
     Active Substance: SOTATERCEPT-CSRK
     Dosage: DOSE DESCRIPTION : UNK
     Dates: start: 202411, end: 202411
  3. WINREVAIR [Suspect]
     Active Substance: SOTATERCEPT-CSRK
     Dosage: 0.7MLS SUBCUTANEOUSLY
     Route: 058
     Dates: start: 20240716
  4. WINREVAIR [Suspect]
     Active Substance: SOTATERCEPT-CSRK
  5. REMODULIN [Suspect]
     Active Substance: TREPROSTINIL
     Indication: Pulmonary arterial hypertension
     Dosage: DOSE DESCRIPTION : 0.07 MICROGRAM PER KILOGRAM, CONTINUOUS?CONCENTRATION: 2.5 MILLIGRAM PER MILLI...
     Route: 042
     Dates: start: 20231002
  6. REMODULIN [Suspect]
     Active Substance: TREPROSTINIL
     Indication: Pulmonary arterial hypertension
     Dosage: DOSE DESCRIPTION : 0.07 MICROGRAM PER KILOGRAM, CONTINUOUS
     Route: 042
     Dates: end: 20241201
  7. ORENITRAM [Suspect]
     Active Substance: TREPROSTINIL
     Indication: Pulmonary arterial hypertension
     Dosage: DOSE DESCRIPTION : 1 MILLIGRAM, Q8H?DAILY DOSE : 3 MILLIGRAM
     Route: 048
     Dates: start: 20241111
  8. DOXYCYCLINE HYCLATE [Suspect]
     Active Substance: DOXYCYCLINE HYCLATE
     Indication: Product used for unknown indication
     Dosage: DOSE DESCRIPTION : UNK
     Dates: start: 202411, end: 202411
  9. FUROSEMIDE [Concomitant]
     Active Substance: FUROSEMIDE
  10. ALDACTONE [Concomitant]
     Active Substance: SPIRONOLACTONE
  11. SODIUM CHLORIDE [Concomitant]
     Active Substance: SODIUM CHLORIDE
  12. OPSUMIT [Concomitant]
     Active Substance: MACITENTAN
  13. TADALAFIL [Concomitant]
     Active Substance: TADALAFIL
  14. PROCHLORPERAZINE [Concomitant]
     Active Substance: PROCHLORPERAZINE
  15. UPTRAVI [Concomitant]
     Active Substance: SELEXIPAG
  16. OMEPRAZOLE [Concomitant]
     Active Substance: OMEPRAZOLE
  17. FAMOTIDINE [Concomitant]
     Active Substance: FAMOTIDINE
  18. OXYGEN [Concomitant]
     Active Substance: OXYGEN

REACTIONS (8)
  - Nausea [Not Recovered/Not Resolved]
  - Fatigue [Unknown]
  - Dyspepsia [Recovered/Resolved]
  - Headache [Unknown]
  - Haemoglobin increased [Unknown]
  - Adverse drug reaction [Recovered/Resolved]
  - Nausea [Recovered/Resolved]
  - Vomiting [Recovered/Resolved]

NARRATIVE: CASE EVENT DATE: 20240101
